FAERS Safety Report 23994836 (Version 2)
Quarter: 2024Q4

REPORT INFORMATION
  Report Type: Spontaneous
  Country: MX (occurrence: MX)
  Receive Date: 20240620
  Receipt Date: 20241001
  Transmission Date: 20250114
  Serious: Yes (Other)
  Sender: EMD SERONO INC
  Company Number: MX-Merck Healthcare KGaA-2024032555

PATIENT
  Age: 42 Year
  Sex: Female

DRUGS (5)
  1. CLADRIBINE [Suspect]
     Active Substance: CLADRIBINE
     Indication: Relapsing-remitting multiple sclerosis
     Dosage: YEAR FIRST WEEK FIRST THERAPY
     Dates: start: 20240408
  2. CLADRIBINE [Suspect]
     Active Substance: CLADRIBINE
     Dosage: YEAR FIRST WEEK SECOND THERAPY
     Dates: start: 20240513
  3. TOPIRAMATE [Concomitant]
     Active Substance: TOPIRAMATE
     Indication: Product used for unknown indication
  4. ESCITALOPRAM [Concomitant]
     Active Substance: ESCITALOPRAM OXALATE
     Indication: Mental disorder
     Dosage: DAILY
  5. DULOXETINE [Concomitant]
     Active Substance: DULOXETINE
     Indication: Depressive symptom
     Dosage: DAILY

REACTIONS (2)
  - Suicide attempt [Recovered/Resolved]
  - Depressive symptom [Recovering/Resolving]

NARRATIVE: CASE EVENT DATE: 20240531
